FAERS Safety Report 5995399-9 (Version None)
Quarter: 2008Q4

REPORT INFORMATION
  Report Type: 
  Country: None (occurrence: None)
  Receive Date: 20081212
  Receipt Date: 20080922
  Transmission Date: 20090506
  Serious: No
  Sender: FDA-Public Use
  Company Number: US-ABBOTT-08P-163-0477702-00

PATIENT
  Sex: Female
  Weight: 67.646 kg

DRUGS (6)
  1. HUMIRA [Suspect]
     Indication: CROHN'S DISEASE
     Route: 058
     Dates: start: 20080701
  2. SULFASALAZINE [Concomitant]
     Indication: CROHN'S DISEASE
  3. TRINESA [Concomitant]
     Indication: DRUG USE FOR UNKNOWN INDICATION
     Dates: start: 19980101
  4. INSULIN ASPART [Concomitant]
     Indication: TYPE 1 DIABETES MELLITUS
     Dosage: SLIDING SCALE TID
     Route: 050
     Dates: start: 19880101
  5. ISOPHANE INSULIN [Concomitant]
     Indication: TYPE 1 DIABETES MELLITUS
     Route: 050
     Dates: start: 19880101
  6. LEVAMIR [Concomitant]
     Dosage: SLIDIDNG SCALE EVERY HS
     Route: 050
     Dates: start: 20030101

REACTIONS (5)
  - BACK PAIN [None]
  - C-REACTIVE PROTEIN INCREASED [None]
  - CROHN'S DISEASE [None]
  - FATIGUE [None]
  - PLATELET COUNT INCREASED [None]
